FAERS Safety Report 7069431-8 (Version None)
Quarter: 2010Q4

REPORT INFORMATION
  Report Type: 
  Country: None (occurrence: None)
  Receive Date: 20101028
  Receipt Date: 20101018
  Transmission Date: 20110411
  Serious: Yes (Hospitalization)
  Sender: FDA-Public Use
  Company Number: DE-GENENTECH-307868

PATIENT
  Sex: Female
  Weight: 69 kg

DRUGS (5)
  1. MABTHERA [Suspect]
     Indication: B-CELL LYMPHOMA
     Dosage: 650 MG, Q3M
     Route: 042
     Dates: start: 20090604
  2. MABTHERA [Suspect]
     Dosage: UNK
     Route: 042
     Dates: start: 20080922, end: 20090306
  3. BENDAMUSTINE [Concomitant]
     Indication: B-CELL LYMPHOMA
     Dosage: UNK
     Dates: start: 20080922, end: 20090306
  4. CIMETIDIN [Concomitant]
     Indication: PREMEDICATION
     Route: 042
  5. CLEMASTINE FUMARATE [Concomitant]
     Indication: PREMEDICATION
     Route: 042

REACTIONS (6)
  - BLOOD PRESSURE INCREASED [None]
  - CEREBRAL HAEMORRHAGE [None]
  - CHILLS [None]
  - COORDINATION ABNORMAL [None]
  - DIZZINESS [None]
  - HYPOAESTHESIA [None]
